FAERS Safety Report 10766633 (Version 1)
Quarter: 2015Q1

REPORT INFORMATION
  Report Type: Spontaneous
  Country: FR (occurrence: FR)
  Receive Date: 20150205
  Receipt Date: 20150205
  Transmission Date: 20150721
  Serious: Yes (Other)
  Sender: FDA-Public Use
  Company Number: PHHY2015FR010796

PATIENT
  Age: 65 Year
  Sex: Female

DRUGS (2)
  1. AFINITOR [Suspect]
     Active Substance: EVEROLIMUS
     Indication: INVASIVE LOBULAR BREAST CARCINOMA
     Dosage: 5 MG, QD
     Route: 048
     Dates: start: 20141105, end: 20141228
  2. AROMASIN [Suspect]
     Active Substance: EXEMESTANE
     Indication: INVASIVE LOBULAR BREAST CARCINOMA
     Dosage: 25 MG, QD
     Route: 048
     Dates: start: 20141105, end: 20141228

REACTIONS (3)
  - Pruritus [Unknown]
  - Rash pustular [Unknown]
  - Rash [Unknown]

NARRATIVE: CASE EVENT DATE: 20141211
